FAERS Safety Report 11701691 (Version 1)
Quarter: 2015Q4

REPORT INFORMATION
  Report Type: Spontaneous
  Country: US (occurrence: US)
  Receive Date: 20151105
  Receipt Date: 20151105
  Transmission Date: 20160304
  Serious: No
  Sender: FDA-Public Use
  Company Number: US-MALLINCKRODT-T201502051

PATIENT
  Sex: Male
  Weight: 58 kg

DRUGS (5)
  1. DOCUSATE [Concomitant]
     Active Substance: DOCUSATE
  2. GRALISE [Concomitant]
     Active Substance: GABAPENTIN
  3. FENTANYL TRANSDERMAL SYSTEM [Suspect]
     Active Substance: FENTANYL
     Indication: CERVICAL VERTEBRAL FRACTURE
  4. MIRALAX [Concomitant]
     Active Substance: POLYETHYLENE GLYCOL 3350
  5. FENTANYL TRANSDERMAL SYSTEM [Suspect]
     Active Substance: FENTANYL
     Indication: SPINAL CORD COMPRESSION
     Dosage: 50 MCG/HR, Q72 HOURS
     Route: 062
     Dates: start: 2013

REACTIONS (7)
  - Weight decreased [Not Recovered/Not Resolved]
  - Insomnia [Not Recovered/Not Resolved]
  - Constipation [Not Recovered/Not Resolved]
  - Gastrointestinal wall thickening [Not Recovered/Not Resolved]
  - Palpitations [Not Recovered/Not Resolved]
  - Gastrointestinal hypomotility [Not Recovered/Not Resolved]
  - Paraesthesia [Not Recovered/Not Resolved]

NARRATIVE: CASE EVENT DATE: 2013
